FAERS Safety Report 25822937 (Version 1)
Quarter: 2025Q3

REPORT INFORMATION
  Report Type: Report from Study
  Country: CA (occurrence: CA)
  Receive Date: 20250919
  Receipt Date: 20250919
  Transmission Date: 20251020
  Serious: Yes (Hospitalization)
  Sender: UCB
  Company Number: CA-UCBSA-2025057319

PATIENT
  Age: 78 Year
  Sex: Female

DRUGS (1)
  1. BIMEKIZUMAB [Suspect]
     Active Substance: BIMEKIZUMAB
     Indication: Psoriasis
     Dosage: 320 MILLIGRAM, EV 8 WEEKS
     Route: 058
     Dates: start: 20240207, end: 202507

REACTIONS (3)
  - Sepsis [Unknown]
  - Psoriasis [Unknown]
  - Illness [Unknown]

NARRATIVE: CASE EVENT DATE: 20250701
